FAERS Safety Report 17421381 (Version 1)
Quarter: 2020Q1

REPORT INFORMATION
  Report Type: Spontaneous
  Country: US (occurrence: US)
  Receive Date: 20200214
  Receipt Date: 20200214
  Transmission Date: 20200409
  Serious: Yes (Hospitalization)
  Sender: FDA-Public Use
  Company Number: US-ASTRAZENECA-2020SE20718

PATIENT
  Sex: Male
  Weight: 99.8 kg

DRUGS (4)
  1. BYDUREON BCISE [Suspect]
     Active Substance: EXENATIDE
     Route: 065
  2. SPRINOLACTONE [Concomitant]
  3. VITAMIN B12 [Concomitant]
     Active Substance: CYANOCOBALAMIN
     Dosage: 1000.0MG UNKNOWN
  4. BYDUREON [Suspect]
     Active Substance: EXENATIDE
     Indication: DIABETES MELLITUS
     Route: 065

REACTIONS (7)
  - Dehydration [Unknown]
  - Swollen tongue [Unknown]
  - Sleep apnoea syndrome [Unknown]
  - Dry mouth [Unknown]
  - Anxiety [Unknown]
  - Circumstance or information capable of leading to medication error [Unknown]
  - Product dose omission [Unknown]
